FAERS Safety Report 4659066-6 (Version None)
Quarter: 2005Q2

REPORT INFORMATION
  Report Type: 
  Country: None (occurrence: None)
  Receive Date: 20050502
  Receipt Date: 20050228
  Transmission Date: 20051028
  Serious: No
  Sender: FDA-Public Use
  Company Number: 200511792US

PATIENT
  Sex: Male

DRUGS (1)
  1. KETEK [Suspect]
     Dosage: 400 MG ONCE
     Dates: start: 20050225, end: 20050225

REACTIONS (3)
  - ANXIETY [None]
  - DIARRHOEA [None]
  - INITIAL INSOMNIA [None]
